FAERS Safety Report 7606402-4 (Version None)
Quarter: 2011Q3

REPORT INFORMATION
  Report Type: 
  Country: None (occurrence: None)
  Receive Date: 20110713
  Receipt Date: 20110708
  Transmission Date: 20111222
  Serious: Yes (Death, Hospitalization, Other)
  Sender: FDA-Public Use
  Company Number: US-AMGEN-USASP2011002900

PATIENT
  Age: 69 Year
  Sex: Male

DRUGS (14)
  1. COREG [Concomitant]
  2. RITUXAN [Concomitant]
  3. FISH OIL [Concomitant]
  4. MULTI VITAMIN AND MINERAL + SELENIUM [Concomitant]
  5. PREDNISONE [Concomitant]
     Dosage: 5 MG, TID
     Route: 048
     Dates: start: 20100413
  6. COLCHICINE [Concomitant]
  7. LISINOPRIL [Concomitant]
  8. AMLODIPINE [Concomitant]
  9. CELEXA [Concomitant]
  10. LORATADINE [Concomitant]
  11. NIACIN [Concomitant]
  12. ALLOPURINOL [Concomitant]
  13. NPLATE [Suspect]
     Indication: IDIOPATHIC THROMBOCYTOPENIC PURPURA
     Dosage: 3 A?G/KG, UNK
     Dates: start: 20100427, end: 20110216
  14. IMMUNOGLOBULINS [Concomitant]

REACTIONS (6)
  - HAEMORRHAGE [None]
  - PNEUMONIA [None]
  - DRUG INEFFECTIVE [None]
  - CARDIO-RESPIRATORY ARREST [None]
  - THROMBOCYTOPENIA [None]
  - SEPSIS [None]
